FAERS Safety Report 18867164 (Version 2)
Quarter: 2021Q1

REPORT INFORMATION
  Report Type: Spontaneous
  Country: GB (occurrence: GB)
  Receive Date: 20210209
  Receipt Date: 20210216
  Transmission Date: 20210420
  Serious: Yes (Other)
  Sender: FDA-Public Use
  Company Number: GB-PFIZER INC-2021107117

PATIENT
  Age: 37 Year
  Sex: Female

DRUGS (2)
  1. TRANEXAMIC ACID. [Suspect]
     Active Substance: TRANEXAMIC ACID
     Indication: MENORRHAGIA
     Dosage: UNK
  2. NORETHISTERONE [Concomitant]
     Active Substance: NORETHINDRONE
     Indication: MENORRHAGIA
     Dosage: UNK

REACTIONS (1)
  - Migraine [Unknown]
